FAERS Safety Report 9506171 (Version 1)
Quarter: 2013Q1

REPORT INFORMATION
  Report Type: Spontaneous
  Country: US (occurrence: None)
  Receive Date: 20130301
  Receipt Date: 20130301
  Transmission Date: 20140127
  Serious: Yes (Hospitalization)
  Sender: FDA-Public Use
  Company Number: 361251

PATIENT
  Age: 36 Year
  Sex: Female
  Weight: 53.1 kg

DRUGS (2)
  1. NOVOLIN N [Suspect]
     Indication: GESTATIONAL DIABETES
     Route: 058
     Dates: start: 20120501, end: 20120613
  2. NOVOLIN R [Suspect]
     Indication: GESTATIONAL DIABETES
     Dosage: 8U WITH LUNCH AND 8 U WITH DINNER
     Route: 058
     Dates: start: 20120515, end: 20120613

REACTIONS (3)
  - Diabetic ketoacidosis [None]
  - Anti-insulin antibody positive [None]
  - Type 1 diabetes mellitus [None]
